FAERS Safety Report 17542858 (Version 1)
Quarter: 2020Q1

REPORT INFORMATION
  Report Type: Report from Study
  Country: None (occurrence: US)
  Receive Date: 20200315
  Receipt Date: 20200315
  Transmission Date: 20200409
  Serious: Yes (Hospitalization)
  Sender: FDA-Public Use
  Company Number: US-ABBVIE-20K-163-3313349-00

PATIENT
  Age: 29 Day
  Sex: Female

DRUGS (2)
  1. HUMIRA [Suspect]
     Active Substance: ADALIMUMAB
     Indication: MATERNAL EXPOSURE TIMING UNSPECIFIED
     Route: 064
  2. HUMIRA [Suspect]
     Active Substance: ADALIMUMAB
     Route: 063

REACTIONS (10)
  - Milk allergy [Recovering/Resolving]
  - Nasopharyngitis [Recovered/Resolved]
  - Foetal exposure during pregnancy [Unknown]
  - Haematochezia [Recovered/Resolved]
  - Food allergy [Recovering/Resolving]
  - Nasopharyngitis [Not Recovered/Not Resolved]
  - Exposure via breast milk [Unknown]
  - Faeces discoloured [Recovered/Resolved]
  - Abdominal pain [Recovered/Resolved]
  - Gastroenteritis viral [Not Recovered/Not Resolved]

NARRATIVE: CASE EVENT DATE: 201810
